FAERS Safety Report 19161209 (Version 2)
Quarter: 2021Q3

REPORT INFORMATION
  Report Type: Spontaneous
  Country: GB (occurrence: GB)
  Receive Date: 20210421
  Receipt Date: 20210702
  Transmission Date: 20211014
  Serious: Yes (Other)
  Sender: FDA-Public Use
  Company Number: GB-AUROBINDO-AUR-APL-2021-016073

PATIENT
  Sex: Female
  Weight: 72 kg

DRUGS (16)
  1. LEVOTHYROXINE SODIUM. [Concomitant]
     Active Substance: LEVOTHYROXINE SODIUM
     Indication: PRODUCT USED FOR UNKNOWN INDICATION
     Dosage: UNK
     Route: 048
     Dates: start: 20140212
  2. SILDENAFIL. [Concomitant]
     Active Substance: SILDENAFIL
     Dosage: 150 MILLIGRAM
     Route: 065
     Dates: start: 20190306
  3. ALENDRONIC ACID [Concomitant]
     Active Substance: ALENDRONIC ACID
     Indication: PRODUCT USED FOR UNKNOWN INDICATION
     Dosage: UNK
     Route: 048
     Dates: start: 20160714
  4. BOSENTAN. [Suspect]
     Active Substance: BOSENTAN
     Indication: PULMONARY HYPERTENSION
     Dosage: 125 MILLIGRAM
     Route: 048
     Dates: start: 20190306
  5. BOSENTAN. [Suspect]
     Active Substance: BOSENTAN
     Dosage: 250 MILLIGRAM
     Route: 048
     Dates: start: 20190406, end: 20210224
  6. OMEPRAZOLE. [Concomitant]
     Active Substance: OMEPRAZOLE
     Indication: PRODUCT USED FOR UNKNOWN INDICATION
     Dosage: UNK
     Route: 048
     Dates: start: 20200417
  7. BOSENTAN FILM COATED TABLETS [Suspect]
     Active Substance: BOSENTAN
     Indication: PULMONARY HYPERTENSION
     Dosage: 250 MILLIGRAM
     Route: 048
     Dates: end: 20210224
  8. ALLOPURINOL. [Concomitant]
     Active Substance: ALLOPURINOL
     Indication: PRODUCT USED FOR UNKNOWN INDICATION
     Dosage: UNK
     Route: 048
     Dates: start: 20150813
  9. FULTIUM?D3 [Concomitant]
     Active Substance: CHOLECALCIFEROL
     Route: 048
     Dates: start: 20160630
  10. SILDENAFIL. [Concomitant]
     Active Substance: SILDENAFIL
     Indication: PULMONARY HYPERTENSION
     Dosage: 150 MILLIGRAM
     Route: 065
     Dates: start: 20161027
  11. SILDENAFIL. [Suspect]
     Active Substance: SILDENAFIL
     Indication: PULMONARY HYPERTENSION
     Dosage: 300 MILLIGRAM
     Route: 065
     Dates: start: 20161027
  12. AMBRISENTAN [Concomitant]
     Active Substance: AMBRISENTAN
     Indication: PULMONARY HYPERTENSION
     Dosage: TOTAL DAILY DOSE ? 5
     Route: 048
     Dates: start: 20210402
  13. ASPIRINE [Concomitant]
     Active Substance: ASPIRIN
     Indication: PRODUCT USED FOR UNKNOWN INDICATION
     Dosage: UNK
     Route: 048
     Dates: start: 20160210
  14. FULTIUM D3 [Concomitant]
     Active Substance: CHOLECALCIFEROL
     Indication: PRODUCT USED FOR UNKNOWN INDICATION
     Dosage: UNK
     Route: 048
     Dates: start: 20160630
  15. FUROSEMIDE. [Concomitant]
     Active Substance: FUROSEMIDE
     Indication: PRODUCT USED FOR UNKNOWN INDICATION
     Dosage: UNK
     Route: 048
     Dates: start: 20170830
  16. SILDENAFIL. [Concomitant]
     Active Substance: SILDENAFIL
     Dosage: 300 MILLIGRAM
     Route: 065
     Dates: start: 20200421

REACTIONS (2)
  - Pulmonary arterial hypertension [Unknown]
  - Liver function test abnormal [Unknown]
